FAERS Safety Report 18142938 (Version 1)
Quarter: 2020Q3

REPORT INFORMATION
  Report Type: Report from Study
  Country: None (occurrence: CA)
  Receive Date: 20200813
  Receipt Date: 20200813
  Transmission Date: 20201103
  Serious: Yes (Hospitalization)
  Sender: FDA-Public Use
  Company Number: CA-ABBVIE-20K-028-3522563-00

PATIENT
  Sex: Female

DRUGS (3)
  1. LEVODOPA/CARBIDOPA [Suspect]
     Active Substance: CARBIDOPA\LEVODOPA
     Indication: PARKINSON^S DISEASE
     Dosage: DUODOPA?LEVODOPA20MG/ML,CARBIDOPAMONOHYDRATE5MG/ML CD:4.2
     Route: 050
     Dates: start: 20180417
  2. LEVODOPA/CARBIDOPA [Suspect]
     Active Substance: CARBIDOPA\LEVODOPA
  3. SINEMET [Concomitant]
     Active Substance: CARBIDOPA\LEVODOPA
     Indication: PRODUCT USED FOR UNKNOWN INDICATION

REACTIONS (3)
  - Confusional state [Not Recovered/Not Resolved]
  - Clostridial infection [Not Recovered/Not Resolved]
  - Urinary tract infection [Not Recovered/Not Resolved]
